FAERS Safety Report 8883747 (Version 2)
Quarter: 2012Q4

REPORT INFORMATION
  Report Type: 
  Country: US (occurrence: US)
  Receive Date: 20121102
  Receipt Date: 20121113
  Transmission Date: 20130627
  Serious: No
  Sender: FDA-Public Use
  Company Number: US-VERTEX PHARMACEUTICAL INC.-2012-023906

PATIENT
  Age: 52 Year
  Sex: Male
  Weight: 87.98 kg

DRUGS (12)
  1. TELAPREVIR [Suspect]
     Indication: HEPATITIS C
     Dosage: 750 mg, tid
     Route: 048
  2. PEGINTERFERON [Suspect]
  3. RIBAVIRIN [Suspect]
  4. TAMSULOSIN [Concomitant]
     Dosage: 0.4 mg, UNK
     Route: 048
  5. LEVOTHYROXINE [Concomitant]
     Dosage: 75 ?g, UNK
     Route: 048
  6. PROVENTIL                          /00139501/ [Concomitant]
     Dosage: 90 ?g, UNK
     Route: 055
  7. LOSARTAN [Concomitant]
     Dosage: 50 mg, UNK
     Route: 048
  8. FINASTERIDE [Concomitant]
     Dosage: 5 mg, UNK
     Route: 048
  9. BETHANECHOL [Concomitant]
     Dosage: 25 mg, UNK
     Route: 048
  10. VITAMIN D3 [Concomitant]
     Route: 048
  11. ASPIRIN [Concomitant]
     Dosage: 81 mg, UNK
     Route: 048
  12. LIVALO [Concomitant]
     Dosage: 2 mg, UNK
     Route: 048

REACTIONS (6)
  - Chest pain [Recovered/Resolved]
  - Insomnia [Recovered/Resolved]
  - Influenza like illness [Recovered/Resolved]
  - Dizziness [Recovered/Resolved]
  - Fatigue [Recovered/Resolved]
  - Rash erythematous [Recovered/Resolved]
